FAERS Safety Report 7502218-8 (Version None)
Quarter: 2011Q1

REPORT INFORMATION
  Report Type: 
  Country: None (occurrence: None)
  Receive Date: 20110318
  Receipt Date: 20100914
  Transmission Date: 20110831
  Serious: Yes (Other)
  Sender: FDA-Public Use
  Company Number: 2010SP049629

PATIENT

DRUGS (2)
  1. PEG-INTRON [Suspect]
     Indication: HEPATITIS C
     Dates: start: 20100801, end: 20100913
  2. RIBAVIRIN [Suspect]
     Indication: HEPATITIS C
     Dates: start: 20100801, end: 20100913

REACTIONS (4)
  - BLOOD URIC ACID INCREASED [None]
  - ANAEMIA [None]
  - PROTEIN TOTAL DECREASED [None]
  - WEIGHT DECREASED [None]
